FAERS Safety Report 19607242 (Version 3)
Quarter: 2021Q3

REPORT INFORMATION
  Report Type: Report from Study
  Country: US (occurrence: US)
  Receive Date: 20210726
  Receipt Date: 20210914
  Transmission Date: 20211014
  Serious: No
  Sender: FDA-Public Use
  Company Number: US-AMGEN-USASP2021112305

PATIENT
  Age: 12 Year
  Sex: Female

DRUGS (3)
  1. ENBREL [Suspect]
     Active Substance: ETANERCEPT
     Indication: JUVENILE IDIOPATHIC ARTHRITIS
     Dosage: 25 MILLIGRAM, QWK
     Route: 065
     Dates: start: 20111206
  2. ENBREL [Suspect]
     Active Substance: ETANERCEPT
     Dosage: 0.7 MILLIGRAM (SDV)
     Route: 065
     Dates: start: 2021
  3. ENBREL [Suspect]
     Active Substance: ETANERCEPT
     Indication: JUVENILE PSORIATIC ARTHRITIS
     Dosage: 0.7 MILLIGRAM (SDV)
     Route: 065
     Dates: start: 20210622, end: 2021

REACTIONS (4)
  - Illness [Unknown]
  - Off label use [Unknown]
  - Injection site pain [Not Recovered/Not Resolved]
  - Fear of injection [Unknown]

NARRATIVE: CASE EVENT DATE: 2021
